FAERS Safety Report 25682149 (Version 2)
Quarter: 2025Q3

REPORT INFORMATION
  Report Type: Spontaneous
  Country: US (occurrence: US)
  Receive Date: 20250814
  Receipt Date: 20250902
  Transmission Date: 20251021
  Serious: No
  Sender: AMGEN
  Company Number: US-AMGEN-USASP2025160528

PATIENT
  Age: 79 Year
  Sex: Female

DRUGS (11)
  1. EVENITY [Suspect]
     Active Substance: ROMOSOZUMAB-AQQG
     Indication: Osteoporosis postmenopausal
     Dosage: UNK, QMO (TWO INJECTIONS)
     Route: 065
     Dates: start: 202506
  2. OMEPRAZOLE [Concomitant]
     Active Substance: OMEPRAZOLE
     Indication: Product used for unknown indication
     Route: 065
  3. ROSUVASTATIN [Concomitant]
     Active Substance: ROSUVASTATIN
     Indication: Blood cholesterol increased
     Route: 065
  4. VITAMIN K [Concomitant]
     Active Substance: PHYTONADIONE
     Indication: Product used for unknown indication
     Route: 065
  5. America [Concomitant]
     Indication: Product used for unknown indication
     Route: 065
  6. MAGNESIUM [Concomitant]
     Active Substance: MAGNESIUM
  7. VITAMIN D [Concomitant]
     Active Substance: VITAMIN D NOS
  8. CALCIUM [Concomitant]
     Active Substance: CALCIUM
  9. ZYRTEC [Concomitant]
     Active Substance: CETIRIZINE HYDROCHLORIDE
     Indication: Seasonal allergy
     Route: 065
  10. SINGULAIR [Concomitant]
     Active Substance: MONTELUKAST SODIUM
     Indication: Seasonal allergy
     Route: 065
  11. SYNTHROID [Concomitant]
     Active Substance: LEVOTHYROXINE SODIUM
     Indication: Hypothyroidism
     Route: 065

REACTIONS (6)
  - Adverse drug reaction [Unknown]
  - Insomnia [Not Recovered/Not Resolved]
  - Restlessness [Unknown]
  - Night sweats [Unknown]
  - Emotional disorder [Unknown]
  - Temporomandibular pain and dysfunction syndrome [Unknown]

NARRATIVE: CASE EVENT DATE: 20250101
